FAERS Safety Report 8921867 (Version 1)
Quarter: 2012Q4

REPORT INFORMATION
  Report Type: 
  Country: TR (occurrence: TR)
  Receive Date: 20121121
  Receipt Date: 20121121
  Transmission Date: 20130627
  Serious: Yes (Other)
  Sender: FDA-Public Use
  Company Number: TR-TEVA-370430ISR

PATIENT
  Age: 30 Year
  Sex: Female

DRUGS (3)
  1. PAROXETINE [Suspect]
     Indication: DEPRESSION
     Dosage: 20 Milligram Daily;
     Route: 048
  2. FLUTICASONE PROPIONATE [Interacting]
     Indication: ASTHMA
     Route: 055
  3. MIRTAZAPINE [Interacting]
     Indication: DEPRESSION
     Dosage: 30 Milligram Daily;
     Route: 048

REACTIONS (5)
  - Cushing^s syndrome [Recovering/Resolving]
  - Decreased appetite [Unknown]
  - Drug interaction [Recovered/Resolved]
  - Fatigue [Unknown]
  - Myalgia [Unknown]
